FAERS Safety Report 6838879-6 (Version None)
Quarter: 2010Q3

REPORT INFORMATION
  Report Type: 
  Country: None (occurrence: None)
  Receive Date: 20100713
  Receipt Date: 20070725
  Transmission Date: 20110219
  Serious: No
  Sender: FDA-Public Use
  Company Number: US-PFIZER INC-2007035084

PATIENT
  Sex: Male
  Weight: 90 kg

DRUGS (4)
  1. CHANTIX [Suspect]
     Indication: SMOKING CESSATION THERAPY
     Dates: start: 20070419
  2. FUROSEMIDE [Concomitant]
  3. PROPRANOLOL [Concomitant]
  4. LISINOPRIL [Concomitant]

REACTIONS (2)
  - PRODUCT QUALITY ISSUE [None]
  - SKIN LACERATION [None]
